FAERS Safety Report 21878934 (Version 1)
Quarter: 2023Q1

REPORT INFORMATION
  Report Type: Spontaneous
  Country: US (occurrence: None)
  Receive Date: 20230117
  Receipt Date: 20230117
  Transmission Date: 20230418
  Serious: Yes (Life-Threatening)
  Sender: FDA-Public Use
  Company Number: None

PATIENT
  Sex: 0

DRUGS (2)
  1. DULOXETINE [Suspect]
     Active Substance: DULOXETINE
     Indication: Anxiety
     Dosage: FREQUENCY : AT BEDTIME;?
     Route: 048
     Dates: start: 20230116, end: 20230117
  2. GABAPENTIN [Suspect]
     Active Substance: GABAPENTIN
     Indication: Back pain
     Dosage: FREQUENCY : 3 TIMES A DAY;?
     Route: 048
     Dates: start: 20221117, end: 20230106

REACTIONS (14)
  - Dizziness [None]
  - Vision blurred [None]
  - Fatigue [None]
  - Muscular weakness [None]
  - Feeling abnormal [None]
  - Balance disorder [None]
  - Throat tightness [None]
  - Dyspnoea [None]
  - Somnolence [None]
  - Palpitations [None]
  - Confusional state [None]
  - Nausea [None]
  - Hiccups [None]
  - Headache [None]

NARRATIVE: CASE EVENT DATE: 20230116
